FAERS Safety Report 26004595 (Version 3)
Quarter: 2025Q4

REPORT INFORMATION
  Report Type: Spontaneous
  Country: US (occurrence: US)
  Receive Date: 20251106
  Receipt Date: 20251202
  Transmission Date: 20260117
  Serious: No
  Sender: ABBVIE
  Company Number: US-ABBVIE-6528960

PATIENT
  Age: 36 Year
  Sex: Female
  Weight: 73.028 kg

DRUGS (4)
  1. LILETTA [Suspect]
     Active Substance: LEVONORGESTREL
     Indication: Product used for unknown indication
     Dosage: TIME INTERVAL: AS NECESSARY: 20.4 MCG/24 HR (UP TO 8 YEARS), PLACE 1 DEVICE BY INTRAUTERINE ROUTE...
     Route: 015
     Dates: start: 20250910, end: 20251029
  2. VITAMIN D [Concomitant]
     Active Substance: VITAMIN D NOS
     Indication: Product used for unknown indication
  3. VITAMIN B12 [Concomitant]
     Active Substance: CYANOCOBALAMIN
     Indication: Product used for unknown indication
  4. NUVARING [Concomitant]
     Active Substance: ETHINYL ESTRADIOL\ETONOGESTREL
     Indication: Product used for unknown indication
     Dosage: 0.12 MG- 0.015 MG/24 HR ?INSERT 1 VAGINAL RING BY VAGINAL ROUTE ONCE A MONTH LEAVE IN PLACE FOR 3...
     Route: 067

REACTIONS (1)
  - Device expulsion [Unknown]

NARRATIVE: CASE EVENT DATE: 20251029
